FAERS Safety Report 8984625 (Version 2)
Quarter: 2013Q1

REPORT INFORMATION
  Report Type: Spontaneous
  Country: ES (occurrence: None)
  Receive Date: 20121214
  Receipt Date: 20121231
  Transmission Date: 20140127
  Serious: Yes (Life-Threatening, Hospitalization)
  Sender: FDA-Public Use
  Company Number: DKLU1086940

PATIENT
  Age: 66 Year
  Sex: Male

DRUGS (11)
  1. TRANXENE [Suspect]
     Indication: PRODUCT USED FOR UNKNOWN INDICATION
     Dates: start: 20121105
  2. LIBERTEK [Suspect]
     Indication: CHRONIC OBSTRUCTIVE PULMONARY DISEASE
     Dosage: 500 UG MICROGRAM(S), 1 IN 1 D
     Dates: start: 201211
  3. PANTOPRAZOLE (PANTOPRAZOLE) [Suspect]
     Indication: PRODUCT USED FOR UNKNOWN INDICATION
     Dates: start: 20121105
  4. BISOPROLOL [Suspect]
     Indication: PRODUCT USED FOR UNKNOWN INDICATION
     Dates: start: 20121105
  5. TORASEMIDE [Suspect]
     Indication: PRODUCT USED FOR UNKNOWN INDICATION
     Dates: start: 20121105
  6. ADIRO [Suspect]
     Indication: PRODUCT USED FOR UNKNOWN INDICATION
     Dates: start: 20121105
  7. NOLOTIL /SPA/ [Suspect]
     Indication: PRODUCT USED FOR UNKNOWN INDICATION
     Dates: start: 20121105
  8. ATORVASTATIN (ATORVASTATIN) [Suspect]
     Indication: PRODUCT USED FOR UNKNOWN INDICATION
     Dates: start: 20121105
  9. IPRATHOPIUM BROMIDE (IPRATROPIUM BROMIDE) [Concomitant]
  10. FLUTICASONE PROPRIONATE PLUS SALMETEROL XINAFOATE (SERETIDE) [Concomitant]
  11. SALBUTAMOL (SALBUTAMOL) [Concomitant]

REACTIONS (5)
  - Suicide attempt [None]
  - Drug administration error [None]
  - Intentional overdose [None]
  - Confusional state [None]
  - Depression [None]
